FAERS Safety Report 8031497-6 (Version None)
Quarter: 2011Q4

REPORT INFORMATION
  Report Type: 
  Country: None (occurrence: None)
  Receive Date: 20111201
  Receipt Date: 20110330
  Transmission Date: 20120403
  Serious: Yes (Other)
  Sender: FDA-Public Use
  Company Number: 273808USA

PATIENT
  Sex: Female

DRUGS (9)
  1. NORETHINDRONE [Suspect]
  2. ESTROGENIC SUBSTANCE [Suspect]
  3. MEDROXYPROGESTERONE [Suspect]
  4. ESTRADERM [Suspect]
  5. ESTRADERM [Suspect]
     Indication: TRANSDERMAL CONTRACEPTION
  6. ESTROGENS CONJUGATED [Suspect]
  7. ESTRADERM [Suspect]
     Indication: TRANSDERMAL CONTRACEPTION
  8. PROGESTERONE [Suspect]
  9. ESTRADIOL [Suspect]

REACTIONS (1)
  - BREAST CANCER [None]
